FAERS Safety Report 5516084-3 (Version None)
Quarter: 2007Q4

REPORT INFORMATION
  Report Type: 
  Country: None (occurrence: None)
  Receive Date: 20071114
  Receipt Date: 20061205
  Transmission Date: 20080405
  Serious: No
  Sender: FDA-Public Use
  Company Number: A0630158A

PATIENT
  Age: 57 Year
  Sex: Male

DRUGS (1)
  1. COMMIT [Suspect]
     Dates: start: 20061202, end: 20061204

REACTIONS (7)
  - CHEST PAIN [None]
  - DRY MOUTH [None]
  - DRY THROAT [None]
  - DYSPEPSIA [None]
  - PHARYNGOLARYNGEAL PAIN [None]
  - SPEECH DISORDER [None]
  - SWOLLEN TONGUE [None]
